FAERS Safety Report 10685012 (Version 2)
Quarter: 2014Q4

REPORT INFORMATION
  Report Type: Report from Study
  Country: US (occurrence: US)
  Receive Date: 20141231
  Receipt Date: 20141231
  Transmission Date: 20150529
  Serious: Yes (Hospitalization, Other)
  Sender: FDA-Public Use
  Company Number: US-BAYER-2014-138569

PATIENT
  Age: 73 Year
  Sex: Male

DRUGS (6)
  1. ADEMPAS [Suspect]
     Active Substance: RIOCIGUAT
     Indication: PULMONARY ARTERIAL HYPERTENSION
     Dosage: 1 MG, TID
     Route: 048
  2. ADEMPAS [Suspect]
     Active Substance: RIOCIGUAT
     Indication: PULMONARY ARTERIAL HYPERTENSION
     Dosage: 1.5 MG, TID
     Route: 048
     Dates: start: 20140916
  3. ASPIRIN [ACETYLSALICYLIC ACID] [Concomitant]
  4. ADEMPAS [Suspect]
     Active Substance: RIOCIGUAT
     Indication: PULMONARY ARTERIAL HYPERTENSION
     Dosage: 2 MG, TID
     Dates: end: 20141223
  5. WARFARIN [Concomitant]
     Active Substance: WARFARIN
  6. ADEMPAS [Suspect]
     Active Substance: RIOCIGUAT
     Indication: PULMONARY ARTERIAL HYPERTENSION
     Dosage: 0.5 MG, TID
     Route: 048
     Dates: start: 20140910

REACTIONS (18)
  - Nausea [None]
  - Renal disorder [None]
  - Abdominal pain upper [None]
  - Ascites [None]
  - Fatigue [Unknown]
  - Micturition frequency decreased [Unknown]
  - Oedema peripheral [None]
  - Diarrhoea [Recovered/Resolved]
  - Vomiting [None]
  - Somnolence [Unknown]
  - Oedema [Unknown]
  - Peripheral swelling [None]
  - Dyspnoea [None]
  - Localised oedema [None]
  - Dehydration [None]
  - Diarrhoea [None]
  - Blood pressure abnormal [None]
  - Joint swelling [Recovered/Resolved]
